FAERS Safety Report 10950812 (Version 4)
Quarter: 2016Q3

REPORT INFORMATION
  Report Type: Spontaneous
  Country: US (occurrence: US)
  Receive Date: 20150324
  Receipt Date: 20160927
  Transmission Date: 20161109
  Serious: Yes (Life-Threatening, Hospitalization, Congenital Anomaly, Other)
  Sender: FDA-Public Use
  Company Number: US-ELI_LILLY_AND_COMPANY-US201503005822

PATIENT
  Age: 0 Day

DRUGS (18)
  1. PROZAC [Suspect]
     Active Substance: FLUOXETINE HYDROCHLORIDE
     Indication: ANXIETY
     Dosage: 20 MG, QD
     Route: 064
     Dates: start: 20050623
  2. MAGNESIUM SULFATE. [Concomitant]
     Active Substance: MAGNESIUM SULFATE
     Indication: PREMATURE LABOUR
     Dosage: 6 G, SINGLE BOLUS
     Route: 064
     Dates: start: 20061101, end: 20061101
  3. AMPICILLIN [Concomitant]
     Active Substance: AMPICILLIN
     Indication: PREMATURE RUPTURE OF MEMBRANES
     Dosage: 2 G, EVERY 6 HRS
     Route: 064
     Dates: start: 20061101, end: 20061105
  4. PRENATAL VITAMINS                  /02014401/ [Concomitant]
     Active Substance: VITAMINS
     Indication: PREGNANCY
     Dosage: UNK, UNKNOWN
     Route: 064
  5. DEMEROL [Concomitant]
     Active Substance: MEPERIDINE HYDROCHLORIDE
     Indication: PAIN
     Dosage: 50 MG, SINGLE
     Route: 064
     Dates: start: 20061103, end: 20061103
  6. IBUPROFEN. [Concomitant]
     Active Substance: IBUPROFEN
     Dosage: UNK, UNKNOWN
     Route: 064
  7. VALIUM [Concomitant]
     Active Substance: DIAZEPAM
     Dosage: UNK, UNKNOWN
     Route: 064
  8. MAGNESIUM SULFATE. [Concomitant]
     Active Substance: MAGNESIUM SULFATE
     Dosage: 40 G, QD
     Route: 064
     Dates: start: 20061101, end: 20061105
  9. BETAMETHASONE. [Concomitant]
     Active Substance: BETAMETHASONE
     Indication: IMMATURE RESPIRATORY SYSTEM
     Dosage: 12 MG, QD
     Route: 064
     Dates: start: 20061101, end: 20061102
  10. TYLENOL [Concomitant]
     Active Substance: ACETAMINOPHEN
     Dosage: UNK, UNKNOWN
     Route: 064
  11. BUTORPHANOL TARTRATE. [Concomitant]
     Active Substance: BUTORPHANOL TARTRATE
     Indication: PAIN
     Dosage: UNK, PRN
     Route: 064
     Dates: start: 20061103, end: 20061105
  12. TERBUTALINE SULFATE. [Concomitant]
     Active Substance: TERBUTALINE SULFATE
     Dosage: 1 MG, SINGLE
     Route: 064
     Dates: start: 20061102, end: 20061102
  13. PROZAC [Suspect]
     Active Substance: FLUOXETINE HYDROCHLORIDE
     Indication: DEPRESSION
  14. AZITHROMYCIN ANHYDROUS. [Concomitant]
     Active Substance: AZITHROMYCIN ANHYDROUS
     Dosage: 250 MG, QD
     Route: 064
     Dates: start: 20061104, end: 20061105
  15. AZITHROMYCIN ANHYDROUS. [Concomitant]
     Active Substance: AZITHROMYCIN ANHYDROUS
     Indication: PREMATURE RUPTURE OF MEMBRANES
     Dosage: 500 MG, SINGLE
     Route: 064
     Dates: start: 20061101, end: 20061101
  16. AZITHROMYCIN ANHYDROUS. [Concomitant]
     Active Substance: AZITHROMYCIN ANHYDROUS
     Dosage: 250 MG, QD
     Route: 064
     Dates: start: 20061102, end: 20061102
  17. PHENERGAN [Concomitant]
     Active Substance: PROMETHAZINE HYDROCHLORIDE
     Dosage: 12.5 MG, SINGLE
     Route: 064
     Dates: start: 20061103, end: 20061103
  18. PHENERGAN [Concomitant]
     Active Substance: PROMETHAZINE HYDROCHLORIDE
     Indication: NAUSEA
     Dosage: 12.5 MG, SINGLE
     Route: 064
     Dates: start: 20061101, end: 20061101

REACTIONS (11)
  - Cardiac valve disease [Unknown]
  - Retinopathy of prematurity [Unknown]
  - Foetal exposure during pregnancy [Recovered/Resolved]
  - Premature baby [Unknown]
  - Anaemia neonatal [Unknown]
  - Infantile apnoea [Unknown]
  - Neonatal respiratory distress syndrome [Recovered/Resolved]
  - Respiratory disorder neonatal [Recovered/Resolved]
  - Persistent foetal circulation [Unknown]
  - Retinopathy of prematurity [Recovered/Resolved]
  - Asthma [Unknown]

NARRATIVE: CASE EVENT DATE: 20061105
